FAERS Safety Report 17212516 (Version 1)
Quarter: 2019Q4

REPORT INFORMATION
  Report Type: Spontaneous
  Country: US (occurrence: US)
  Receive Date: 20191230
  Receipt Date: 20191230
  Transmission Date: 20200122
  Serious: Yes (Hospitalization)
  Sender: FDA-Public Use
  Company Number: US-TEVA-2019-US-1160099

PATIENT
  Age: 26 Month
  Sex: Female

DRUGS (1)
  1. CLONIDINE. [Suspect]
     Active Substance: CLONIDINE
     Indication: ACCIDENTAL OVERDOSE
     Route: 048

REACTIONS (6)
  - Bradypnoea [Recovered/Resolved]
  - Accidental overdose [Unknown]
  - Miosis [Recovered/Resolved]
  - Bradycardia [Recovered/Resolved]
  - Somnolence [Recovered/Resolved]
  - Depression [Recovered/Resolved]
